FAERS Safety Report 15370759 (Version 1)
Quarter: 2018Q3

REPORT INFORMATION
  Report Type: Spontaneous
  Country: CA (occurrence: CA)
  Receive Date: 20180911
  Receipt Date: 20180911
  Transmission Date: 20181010
  Serious: Yes (Hospitalization)
  Sender: FDA-Public Use
  Company Number: CA-PFIZER INC-2018351850

PATIENT
  Age: 71 Year
  Sex: Female

DRUGS (16)
  1. VITALUX [Concomitant]
     Active Substance: MINERALS\VITAMINS
     Dosage: 2 AT LUNCH
  2. TYLENOL EXTRA STRENGTH [Concomitant]
     Active Substance: ACETAMINOPHEN
     Dosage: 500 MG, UNK
  3. VANCOMYCIN HCL [Suspect]
     Active Substance: VANCOMYCIN HYDROCHLORIDE
     Indication: CLOSTRIDIUM DIFFICILE INFECTION
     Dosage: UNK
     Dates: start: 20180816
  4. COVERSYL [Concomitant]
     Active Substance: PERINDOPRIL
     Dosage: 8 MG, UNK
  5. VITAMIN D [COLECALCIFEROL] [Concomitant]
     Dosage: 1000 IU, UNK
  6. SYMBICORT [Concomitant]
     Active Substance: BUDESONIDE\FORMOTEROL FUMARATE DIHYDRATE
     Dosage: UNK
  7. INFLECTRA [INFLIXIMAB] [Concomitant]
     Indication: COLITIS ULCERATIVE
     Dosage: 500 MG, (EVERY 0, 2 , 6 WEEKS, THEN EVERY 8 WEEKS)
     Route: 042
     Dates: start: 20180319
  8. PREDNISONE. [Concomitant]
     Active Substance: PREDNISONE
     Dosage: UNK
  9. ONDISSOLVE [Concomitant]
     Dosage: 4 MG, UNK
  10. MELATONIN [Concomitant]
     Active Substance: MELATONIN
     Dosage: 10 MG, UNK
  11. ASA [Concomitant]
     Active Substance: ASPIRIN
     Dosage: 81 MG, UNK
  12. ONDANSETRON [Concomitant]
     Active Substance: ONDANSETRON
     Dosage: 4 MG, UNK
  13. INFLECTRA [INFLIXIMAB] [Concomitant]
     Dosage: 500 MG, (EVERY 0, 2 , 6 WEEKS, THEN EVERY 8 WEEKS)
     Route: 042
     Dates: start: 20180625
  14. ENTYVIO [Concomitant]
     Active Substance: VEDOLIZUMAB
     Dosage: UNK
  15. CALCIUM [Concomitant]
     Active Substance: CALCIUM
     Dosage: 500 MG, UNK
  16. PROBIOTICS [Concomitant]
     Active Substance: PROBIOTICS NOS
     Dosage: 1 IN MORNING

REACTIONS (3)
  - White blood cell count increased [Unknown]
  - Drug effect incomplete [Not Recovered/Not Resolved]
  - Blood potassium decreased [Unknown]
